FAERS Safety Report 4867492-5 (Version None)
Quarter: 2005Q4

REPORT INFORMATION
  Report Type: 
  Country: None (occurrence: None)
  Receive Date: 20051228
  Receipt Date: 20050927
  Transmission Date: 20060501
  Serious: Yes (Hospitalization, Other)
  Sender: FDA-Public Use
  Company Number: US-MERCK-0509USA04487

PATIENT
  Age: 57 Year
  Sex: Female
  Weight: 93 kg

DRUGS (8)
  1. VIOXX [Suspect]
     Indication: PAIN
     Route: 048
     Dates: start: 20000627, end: 20010222
  2. VIOXX [Suspect]
     Indication: NECK PAIN
     Route: 048
     Dates: start: 20000627, end: 20010222
  3. ASPIRIN [Concomitant]
     Route: 065
  4. PREMARIN [Concomitant]
     Route: 065
  5. CELEXA [Concomitant]
     Route: 065
  6. TEVETEN [Concomitant]
     Route: 065
  7. ATENOLOL [Concomitant]
     Route: 065
  8. HYDROCHLOROTHIAZIDE [Concomitant]
     Route: 065

REACTIONS (17)
  - ANXIETY [None]
  - CARDIAC ARREST [None]
  - CARDIAC FAILURE CONGESTIVE [None]
  - CORONARY ARTERY DISEASE [None]
  - CORONARY ARTERY STENOSIS [None]
  - DECREASED APPETITE [None]
  - DEPRESSION [None]
  - DIZZINESS [None]
  - FEELING ABNORMAL [None]
  - HYPERLIPIDAEMIA [None]
  - INSOMNIA [None]
  - MYOCARDIAL INFARCTION [None]
  - SINUS BRADYCARDIA [None]
  - SLEEP APNOEA SYNDROME [None]
  - TEARFULNESS [None]
  - VENTRICULAR FIBRILLATION [None]
  - VENTRICULAR HYPERTROPHY [None]
